FAERS Safety Report 24103743 (Version 1)
Quarter: 2024Q3

REPORT INFORMATION
  Report Type: Report from Study
  Country: US (occurrence: None)
  Receive Date: 20240717
  Receipt Date: 20240717
  Transmission Date: 20241017
  Serious: Yes (Hospitalization)
  Sender: ASTRAZENECA
  Company Number: 2019SF37264

PATIENT
  Sex: Female
  Weight: 37.6 kg

DRUGS (2)
  1. TAGRISSO [Suspect]
     Active Substance: OSIMERTINIB
     Dosage: UNKNOWN80.0MG UNKNOWN
     Route: 048
  2. WARSARIN [Concomitant]

REACTIONS (3)
  - Cerebral thrombosis [Unknown]
  - Body height decreased [Unknown]
  - Weight decreased [Unknown]
